FAERS Safety Report 10533625 (Version 2)
Quarter: 2014Q4

REPORT INFORMATION
  Report Type: Spontaneous
  Country: IN (occurrence: IN)
  Receive Date: 20141022
  Receipt Date: 20141028
  Transmission Date: 20150529
  Serious: Yes (Death)
  Sender: FDA-Public Use
  Company Number: IN-ROCHE-1477430

PATIENT
  Age: 61 Year
  Sex: Male

DRUGS (1)
  1. ACTILYSE [Suspect]
     Active Substance: ALTEPLASE
     Indication: ISCHAEMIC STROKE
     Route: 042

REACTIONS (1)
  - Acute myocardial infarction [Fatal]
